FAERS Safety Report 12663923 (Version 2)
Quarter: 2016Q3

REPORT INFORMATION
  Report Type: Spontaneous
  Country: IT (occurrence: IT)
  Receive Date: 20160818
  Receipt Date: 20160912
  Transmission Date: 20161109
  Serious: Yes (Other)
  Sender: FDA-Public Use
  Company Number: IT-SA-2016SA147046

PATIENT
  Sex: Female
  Weight: 68 kg

DRUGS (2)
  1. FERLIXIT [Suspect]
     Active Substance: SODIUM FERRIC GLUCONATE COMPLEX
     Indication: ANAEMIA
     Dosage: STRENGHT - 62.5 MG/ML INJECTABLE SOLUTION FOR ORAL AND IV USE DOSE:1 UNIT(S)
     Route: 042
     Dates: start: 20160722, end: 20160724
  2. FERINJECT [Suspect]
     Active Substance: FERRIC CARBOXYMALTOSE
     Indication: ANAEMIA
     Dosage: STRENGHT - 50MG/ML INJECTABLE SOLUTION FOR INFUSION
     Route: 042
     Dates: start: 20160727, end: 20160727

REACTIONS (6)
  - Thrombocytopenia [Recovering/Resolving]
  - Petechiae [Not Recovered/Not Resolved]
  - Purpura [Recovering/Resolving]
  - Contusion [Not Recovered/Not Resolved]
  - Haematoma [Recovering/Resolving]
  - Skin lesion [Not Recovered/Not Resolved]

NARRATIVE: CASE EVENT DATE: 20160731
